FAERS Safety Report 8208381-8 (Version None)
Quarter: 2012Q1

REPORT INFORMATION
  Report Type: 
  Country: None (occurrence: None)
  Receive Date: 20120227
  Receipt Date: 20120118
  Transmission Date: 20120608
  Serious: No
  Sender: FDA-Public Use
  Company Number: 342522

PATIENT
  Age: 74 Year
  Sex: Male

DRUGS (2)
  1. VICTOZA [Suspect]
     Indication: TYPE 2 DIABETES MELLITUS
     Dosage: 1.8 MG ,QD, SUBCUTANEOUS
     Route: 058
     Dates: end: 20111221
  2. METFORMIN HCL [Concomitant]

REACTIONS (2)
  - HEADACHE [None]
  - CONSTIPATION [None]
